FAERS Safety Report 7509589-7 (Version None)
Quarter: 2011Q2

REPORT INFORMATION
  Report Type: 
  Country: None (occurrence: None)
  Receive Date: 20110527
  Receipt Date: 20110523
  Transmission Date: 20111010
  Serious: Yes (Other)
  Sender: FDA-Public Use
  Company Number: GR-SANOFI-AVENTIS-2011SA032171

PATIENT
  Age: 84 Year
  Sex: Male

DRUGS (4)
  1. APIDRA [Concomitant]
     Dosage: 5-8 UNITS
  2. LANTUS [Suspect]
     Route: 058
  3. IRBESARTAN [Concomitant]
  4. AMLODIPINE BESYLATE [Concomitant]

REACTIONS (1)
  - HYPOGLYCAEMIC COMA [None]
